FAERS Safety Report 6009110-9 (Version None)
Quarter: 2008Q4

REPORT INFORMATION
  Report Type: 
  Country: None (occurrence: None)
  Receive Date: 20081216
  Receipt Date: 20081205
  Transmission Date: 20090506
  Serious: Yes (Hospitalization)
  Sender: FDA-Public Use
  Company Number: OMPQ-NO-0812S-1116

PATIENT
  Age: 67 Year
  Sex: Male

DRUGS (1)
  1. OMNIPAQUE (IOHEXOL) [Suspect]
     Indication: CATHETERISATION CARDIAC
     Dosage: 150 ML, SINGLE DOSE, CORONARY
     Dates: start: 20081106, end: 20081106

REACTIONS (1)
  - OCULOMUCOCUTANEOUS SYNDROME [None]
